FAERS Safety Report 20909102 (Version 1)
Quarter: 2022Q2

REPORT INFORMATION
  Report Type: Spontaneous
  Country: US (occurrence: US)
  Receive Date: 20220603
  Receipt Date: 20220603
  Transmission Date: 20220720
  Serious: No
  Sender: FDA-Public Use
  Company Number: US-OTSUKA-2021_039660

PATIENT
  Age: 40 Year
  Sex: Female

DRUGS (1)
  1. JYNARQUE [Suspect]
     Active Substance: TOLVAPTAN
     Indication: Product used for unknown indication
     Dosage: UNK, BID
     Route: 065
     Dates: start: 202001

REACTIONS (2)
  - Polydipsia [Unknown]
  - Pollakiuria [Unknown]
